FAERS Safety Report 8488623-4 (Version None)
Quarter: 2012Q3

REPORT INFORMATION
  Report Type: 
  Country: None (occurrence: None)
  Receive Date: 20120705
  Receipt Date: 20120702
  Transmission Date: 20120928
  Serious: Yes (Life-Threatening, Other)
  Sender: FDA-Public Use
  Company Number: PHHY2012BR057079

PATIENT
  Age: 97 Year
  Sex: Female

DRUGS (12)
  1. PROLOPA [Concomitant]
  2. EXELON [Suspect]
     Dosage: UNK UKN, UNK
     Route: 048
     Dates: start: 20060101
  3. TRENTAL ^ALBERT-ROUSSEL^ [Concomitant]
  4. VENALOT (COUMARIN) [Concomitant]
  5. EXELON [Suspect]
     Indication: DEMENTIA ALZHEIMER'S TYPE
     Dosage: UNK UKN, UNK
     Route: 048
     Dates: start: 20050101
  6. CAPOTEN [Concomitant]
     Indication: HYPERTENSION
  7. CILOSTAZOL [Concomitant]
  8. QUETIAPINE FUMARATE [Concomitant]
     Indication: INSOMNIA
     Dates: start: 20120702
  9. HYDERGINE [Suspect]
     Indication: CARDIOVASCULAR DISORDER
     Dosage: 20 DRP, BID
     Dates: start: 20040101
  10. EPESO [Concomitant]
     Indication: INSOMNIA
  11. ABILIFY [Concomitant]
  12. SEROQUEL [Concomitant]

REACTIONS (8)
  - SYNCOPE [None]
  - MUSCULAR WEAKNESS [None]
  - AGITATION [None]
  - VOMITING [None]
  - MALAISE [None]
  - PALLOR [None]
  - EYE DISORDER [None]
  - APPARENT DEATH [None]
